FAERS Safety Report 20391181 (Version 1)
Quarter: 2022Q1

REPORT INFORMATION
  Report Type: Spontaneous
  Country: IE (occurrence: IE)
  Receive Date: 20220128
  Receipt Date: 20220128
  Transmission Date: 20220423
  Serious: Yes (Other)
  Sender: FDA-Public Use
  Company Number: None

PATIENT
  Age: 61 Year
  Sex: Male

DRUGS (2)
  1. VANCOMYCIN [Suspect]
     Active Substance: VANCOMYCIN
     Indication: Device related infection
     Route: 065
     Dates: start: 2021
  2. CEFTRIAXONE [Suspect]
     Active Substance: CEFTRIAXONE
     Indication: Device related infection
     Route: 065

REACTIONS (5)
  - Atrial fibrillation [Recovering/Resolving]
  - Arrhythmia [Unknown]
  - Inflammatory marker increased [Recovering/Resolving]
  - Pyrexia [Recovering/Resolving]
  - Illness [Unknown]

NARRATIVE: CASE EVENT DATE: 20210101
